FAERS Safety Report 17035264 (Version 1)
Quarter: 2019Q4

REPORT INFORMATION
  Report Type: Spontaneous
  Country: IT (occurrence: IT)
  Receive Date: 20191115
  Receipt Date: 20191115
  Transmission Date: 20200122
  Serious: Yes (Hospitalization)
  Sender: FDA-Public Use
  Company Number: IT-009507513-1911ITA002063

PATIENT
  Age: 88 Year
  Sex: Male

DRUGS (1)
  1. INVANZ [Suspect]
     Active Substance: ERTAPENEM SODIUM
     Indication: SEPSIS
     Dosage: 1 GRAM, QD, PHARMACEUTICAL DOSAGE FORM: SOLUTION FOR INFUSION
     Route: 041
     Dates: start: 20191016, end: 20191018

REACTIONS (1)
  - Epilepsy [Recovered/Resolved]
